FAERS Safety Report 24395154 (Version 2)
Quarter: 2024Q4

REPORT INFORMATION
  Report Type: Spontaneous
  Country: JP (occurrence: JP)
  Receive Date: 20241004
  Receipt Date: 20241126
  Transmission Date: 20250114
  Serious: Yes (Other)
  Sender: JOHNSON AND JOHNSON
  Company Number: JP-MTPC-MTPC2024-0020243

PATIENT
  Age: 76 Year
  Sex: Male

DRUGS (1)
  1. INFLIXIMAB [Suspect]
     Active Substance: INFLIXIMAB
     Indication: Product used for unknown indication
     Route: 041

REACTIONS (5)
  - Gene mutation [Unknown]
  - Lung opacity [Unknown]
  - Prostatic abscess [Unknown]
  - Atypical mycobacterial infection [Unknown]
  - Off label use [Unknown]
